FAERS Safety Report 26113270 (Version 2)
Quarter: 2025Q4

REPORT INFORMATION
  Report Type: Spontaneous
  Country: US (occurrence: US)
  Receive Date: 20251202
  Receipt Date: 20251226
  Transmission Date: 20260118
  Serious: Yes (Other)
  Sender: GALDERMA
  Company Number: US-GALDERMA-US2025024747

PATIENT

DRUGS (5)
  1. NEMLUVIO [Suspect]
     Active Substance: NEMOLIZUMAB-ILTO
     Indication: Pruritus
     Dosage: UNK
     Route: 058
     Dates: start: 20250917, end: 20250917
  2. NEMLUVIO [Suspect]
     Active Substance: NEMOLIZUMAB-ILTO
     Dosage: UNK
     Route: 058
     Dates: start: 20251015, end: 20251015
  3. NEMLUVIO [Suspect]
     Active Substance: NEMOLIZUMAB-ILTO
     Dosage: UNK
     Route: 058
     Dates: start: 20251119
  4. CANNABIS SATIVA SUBSP. INDICA TOP [Concomitant]
     Active Substance: CANNABIS SATIVA SUBSP. INDICA TOP
     Indication: Product used for unknown indication
     Dosage: CHOCOLATE CANNABIS, PAST 6 YEARS, 72 TO 95 MG/DAY
     Route: 065
  5. CANNABIS SATIVA SUBSP. INDICA TOP [Concomitant]
     Active Substance: CANNABIS SATIVA SUBSP. INDICA TOP
     Dosage: 64.7 THC, 16.22 CBD
     Route: 065
     Dates: start: 20251119

REACTIONS (17)
  - Hallucination [Recovered/Resolved]
  - Paralysis [Recovered/Resolved]
  - Dehydration [Unknown]
  - Asthenia [Unknown]
  - Headache [Recovered/Resolved]
  - Nausea [Recovered/Resolved]
  - Insomnia [Unknown]
  - Injection site haemorrhage [Unknown]
  - Pain [Unknown]
  - Fatigue [Recovered/Resolved]
  - Loss of personal independence in daily activities [Unknown]
  - Balance disorder [Unknown]
  - Agitation [Unknown]
  - Vomiting [Unknown]
  - Inappropriate schedule of product administration [Recovered/Resolved]
  - Drug intolerance [Recovered/Resolved]
  - Device malfunction [Recovered/Resolved]

NARRATIVE: CASE EVENT DATE: 20250101
